FAERS Safety Report 20424756 (Version 1)
Quarter: 2022Q1

REPORT INFORMATION
  Report Type: Report from Study
  Country: US (occurrence: US)
  Receive Date: 20220203
  Receipt Date: 20220203
  Transmission Date: 20220423
  Serious: No
  Sender: FDA-Public Use
  Company Number: US-EXELIXIS-CABO-21037704

PATIENT
  Sex: Male

DRUGS (2)
  1. CABOMETYX [Suspect]
     Active Substance: CABOZANTINIB S-MALATE
     Indication: Renal cancer
     Dosage: 20 MG, QD
     Route: 048
     Dates: start: 20210210
  2. CABOMETYX [Suspect]
     Active Substance: CABOZANTINIB S-MALATE
     Dosage: 20 MG, QD (5 DAYS A WEEK AND OFF ON THE WEEKENDS)
     Route: 048

REACTIONS (5)
  - Blister [Unknown]
  - Peripheral swelling [Unknown]
  - Hypersomnia [Unknown]
  - Fatigue [Unknown]
  - Inappropriate schedule of product administration [Unknown]
